FAERS Safety Report 14098997 (Version 3)
Quarter: 2018Q1

REPORT INFORMATION
  Report Type: Spontaneous
  Country: FR (occurrence: FR)
  Receive Date: 20171017
  Receipt Date: 20180226
  Transmission Date: 20180508
  Serious: Yes (Life-Threatening, Hospitalization, Other)
  Sender: FDA-Public Use
  Company Number: FR-SA-2017SA199621

PATIENT
  Age: 66 Year
  Sex: Male

DRUGS (12)
  1. CEFAZOLIN [Suspect]
     Active Substance: CEFAZOLIN
     Indication: ENDOCARDITIS STAPHYLOCOCCAL
     Route: 042
  2. CEFAZOLIN [Suspect]
     Active Substance: CEFAZOLIN
     Indication: STAPHYLOCOCCAL INFECTION
     Route: 042
  3. CEFAZOLIN [Suspect]
     Active Substance: CEFAZOLIN
     Indication: ENDOCARDITIS STAPHYLOCOCCAL
     Route: 042
  4. RIFAMPICIN [Suspect]
     Active Substance: RIFAMPIN
     Indication: STAPHYLOCOCCAL INFECTION
     Route: 065
  5. GENTAMICIN. [Concomitant]
     Active Substance: GENTAMICIN
     Indication: STAPHYLOCOCCAL INFECTION
     Route: 065
  6. OXACILLIN [Concomitant]
     Active Substance: OXACILLIN SODIUM
     Indication: ENDOCARDITIS
     Route: 065
  7. OXACILLIN [Concomitant]
     Active Substance: OXACILLIN SODIUM
     Indication: STAPHYLOCOCCAL INFECTION
     Route: 065
  8. CEFAZOLIN [Suspect]
     Active Substance: CEFAZOLIN
     Indication: STAPHYLOCOCCAL INFECTION
     Route: 042
  9. RIFAMPICIN [Suspect]
     Active Substance: RIFAMPIN
     Indication: ENDOCARDITIS STAPHYLOCOCCAL
     Route: 065
  10. RIFAMPICIN [Suspect]
     Active Substance: RIFAMPIN
     Indication: STAPHYLOCOCCAL INFECTION
     Route: 065
  11. RIFAMPICIN [Suspect]
     Active Substance: RIFAMPIN
     Indication: ENDOCARDITIS STAPHYLOCOCCAL
     Route: 065
  12. GENTAMICIN. [Concomitant]
     Active Substance: GENTAMICIN
     Indication: ENDOCARDITIS
     Route: 065

REACTIONS (8)
  - Haemoglobin decreased [Recovering/Resolving]
  - Vitamin K decreased [Recovered/Resolved]
  - Hypoprothrombinaemia [Recovered/Resolved]
  - Blood fibrinogen decreased [Recovered/Resolved]
  - Gastrointestinal haemorrhage [Recovered/Resolved]
  - Hypovitaminosis [Recovered/Resolved]
  - Prothrombin level decreased [Recovered/Resolved]
  - Shock haemorrhagic [Recovered/Resolved]
